FAERS Safety Report 24866492 (Version 1)
Quarter: 2025Q1

REPORT INFORMATION
  Report Type: Spontaneous
  Country: US (occurrence: US)
  Receive Date: 20250121
  Receipt Date: 20250121
  Transmission Date: 20250408
  Serious: No
  Sender: CURRAX PHARMACEUTICALS
  Company Number: US-CURRAX PHARMACEUTICALS LLC-US-2022CUR023977

PATIENT
  Sex: Female
  Weight: 191.6 kg

DRUGS (3)
  1. CONTRAVE [Suspect]
     Active Substance: BUPROPION HYDROCHLORIDE\NALTREXONE HYDROCHLORIDE
     Indication: Weight control
     Dosage: 1 DF QD
     Route: 048
     Dates: start: 20220730, end: 20220924
  2. CONTRAVE [Suspect]
     Active Substance: BUPROPION HYDROCHLORIDE\NALTREXONE HYDROCHLORIDE
     Dosage: RESTARTED AT 1 DF QD
     Route: 048
     Dates: start: 20221007, end: 202210
  3. SERTRALINE [Interacting]
     Active Substance: SERTRALINE HYDROCHLORIDE
     Indication: Product used for unknown indication
     Dosage: 150 MG, QD
     Route: 048

REACTIONS (6)
  - Sinusitis [Recovered/Resolved]
  - Weight increased [Unknown]
  - Headache [Recovered/Resolved]
  - Drug interaction [Unknown]
  - Therapeutic product effect decreased [Unknown]
  - Drug titration error [Unknown]

NARRATIVE: CASE EVENT DATE: 20220101
